FAERS Safety Report 8429888-4 (Version None)
Quarter: 2012Q2

REPORT INFORMATION
  Report Type: 
  Country: None (occurrence: None)
  Receive Date: 20120612
  Receipt Date: 20120604
  Transmission Date: 20120825
  Serious: Yes (Death, Life-Threatening, Hospitalization, Other)
  Sender: FDA-Public Use
  Company Number: NL-ASTRAZENECA-2012SE28061

PATIENT
  Age: 25004 Day
  Sex: Male

DRUGS (13)
  1. PANTOPRAZOLE [Concomitant]
     Indication: HYPERCHLORHYDRIA
     Route: 048
  2. ASPEGIC 1000 [Concomitant]
     Indication: CORONARY ARTERY DISEASE
     Route: 042
     Dates: start: 20120423, end: 20120423
  3. CEFUROXIME [Concomitant]
     Indication: INFECTION
     Route: 042
     Dates: start: 20120423, end: 20120425
  4. METOPROLOL [Concomitant]
     Indication: HYPERTENSION
     Route: 048
     Dates: end: 20120423
  5. AZD6140 [Suspect]
     Indication: CORONARY ARTERY DISEASE
     Route: 048
     Dates: start: 20110701
  6. ASPIRIN [Concomitant]
     Indication: CORONARY ARTERY DISEASE
     Route: 042
     Dates: start: 20120423, end: 20120423
  7. ASPIRIN [Concomitant]
     Route: 048
     Dates: end: 20120425
  8. SIMVASTATIN [Concomitant]
     Indication: HYPERCHOLESTEROLAEMIA
     Route: 048
     Dates: end: 20120425
  9. FINASTERIDE AUROBINDO [Concomitant]
     Indication: BENIGN PROSTATIC HYPERPLASIA
     Route: 048
     Dates: end: 20120425
  10. METRONIDAZOLE [Concomitant]
     Indication: INFECTION
     Route: 042
     Dates: start: 20120423, end: 20120425
  11. DOBUTREX [Concomitant]
     Indication: HYPOTENSION
     Route: 042
     Dates: start: 20120403, end: 20120424
  12. ZOFIL [Concomitant]
     Indication: CORONARY ARTERY DISEASE
     Route: 048
  13. NITROGLYCERIN [Concomitant]
     Indication: CHEST PAIN
     Route: 048
     Dates: start: 20120423, end: 20120423

REACTIONS (6)
  - ILIAC ARTERY OCCLUSION [None]
  - INTESTINAL ISCHAEMIA [None]
  - GASTRIC ULCER HAEMORRHAGE [None]
  - GASTRITIS HYPERTROPHIC [None]
  - CEREBRAL ISCHAEMIA [None]
  - RENAL FAILURE [None]
